FAERS Safety Report 6303626-3 (Version None)
Quarter: 2009Q3

REPORT INFORMATION
  Report Type: 
  Country: None (occurrence: None)
  Receive Date: 20090807
  Receipt Date: 20090807
  Transmission Date: 20100115
  Serious: Yes (Hospitalization)
  Sender: FDA-Public Use
  Company Number: None

PATIENT
  Age: 54 Year
  Sex: Female
  Weight: 51.2565 kg

DRUGS (1)
  1. CIPROFLOXACIN [Suspect]
     Indication: URINARY TRACT INFECTION
     Dosage: 500MG  TWO TIMES A DAY
     Dates: start: 20090709, end: 20090715

REACTIONS (9)
  - ARTHRALGIA [None]
  - CHILLS [None]
  - DRUG INEFFECTIVE [None]
  - MUSCLE DISORDER [None]
  - MUSCLE SPASMS [None]
  - OEDEMA PERIPHERAL [None]
  - PYREXIA [None]
  - TINNITUS [None]
  - TREMOR [None]
